FAERS Safety Report 10256952 (Version 2)
Quarter: 2014Q3

REPORT INFORMATION
  Report Type: Spontaneous
  Country: ES (occurrence: ES)
  Receive Date: 20140625
  Receipt Date: 20140702
  Transmission Date: 20150326
  Serious: Yes (Death, Other)
  Sender: FDA-Public Use
  Company Number: ES-UCBSA-2014003012

PATIENT
  Age: 77 Year
  Sex: Female

DRUGS (7)
  1. DEPRAX [Concomitant]
     Active Substance: TRAZODONE HYDROCHLORIDE
  2. RISPERIDONE. [Concomitant]
     Active Substance: RISPERIDONE
  3. SIMVASTATIN. [Concomitant]
     Active Substance: SIMVASTATIN
  4. POTASSIUM [Concomitant]
     Active Substance: POTASSIUM
  5. ENALAPRIL [Concomitant]
     Active Substance: ENALAPRIL
  6. PAROXETINE [Concomitant]
     Active Substance: PAROXETINE\PAROXETINE HYDROCHLORIDE
  7. KEPPRA [Suspect]
     Active Substance: LEVETIRACETAM
     Indication: PARTIAL SEIZURES
     Dosage: 500 MG, 2X/DAY (BID)
     Dates: start: 20140609

REACTIONS (3)
  - Delirium [Not Recovered/Not Resolved]
  - Colon cancer [Fatal]
  - Ataxia [Not Recovered/Not Resolved]

NARRATIVE: CASE EVENT DATE: 201406
